FAERS Safety Report 23246299 (Version 1)
Quarter: 2023Q4

REPORT INFORMATION
  Report Type: Spontaneous
  Country: FR (occurrence: FR)
  Receive Date: 20231130
  Receipt Date: 20231130
  Transmission Date: 20240109
  Serious: Yes (Hospitalization)
  Sender: FDA-Public Use
  Company Number: None

PATIENT
  Age: 82 Year
  Sex: Female
  Weight: 46.9 kg

DRUGS (2)
  1. KEPPRA [Suspect]
     Active Substance: LEVETIRACETAM
     Indication: Intentional overdose
     Dosage: UNK, NP
     Route: 048
     Dates: start: 20231022, end: 20231022
  2. LAMICTAL [Suspect]
     Active Substance: LAMOTRIGINE
     Indication: Intentional overdose
     Dosage: UNK, NP
     Route: 048
     Dates: start: 20231022, end: 20231022

REACTIONS (6)
  - Aspiration [Recovered/Resolved]
  - Altered state of consciousness [Recovered/Resolved]
  - Acidosis [Recovered/Resolved]
  - Arrhythmia [Recovered/Resolved]
  - Poisoning deliberate [Recovered/Resolved]
  - Intentional overdose [Unknown]

NARRATIVE: CASE EVENT DATE: 20231022
